FAERS Safety Report 7667873-0 (Version None)
Quarter: 2011Q3

REPORT INFORMATION
  Report Type: 
  Country: None (occurrence: None)
  Receive Date: 20110806
  Receipt Date: 20110615
  Transmission Date: 20111222
  Serious: No
  Sender: FDA-Public Use
  Company Number: US-ABBOTT-11P-163-0732336-00

PATIENT
  Sex: Female
  Weight: 99.88 kg

DRUGS (8)
  1. NIASPAN [Suspect]
     Indication: PRODUCT USED FOR UNKNOWN INDICATION
     Dosage: AT BEDTIME
     Dates: start: 20110614
  2. ASPIRIN [Concomitant]
     Indication: PRODUCT USED FOR UNKNOWN INDICATION
     Dosage: BEFORE TAKING NIASPAN COATED
  3. UNKNOWN NARES SPRAY [Concomitant]
     Indication: PRODUCT USED FOR UNKNOWN INDICATION
  4. SUDAFED 12 HOUR [Concomitant]
     Indication: PRODUCT USED FOR UNKNOWN INDICATION
  5. CLONAZEPIN [Concomitant]
     Indication: PRODUCT USED FOR UNKNOWN INDICATION
  6. CISOL [Concomitant]
     Indication: PRODUCT USED FOR UNKNOWN INDICATION
  7. LOVAZA [Concomitant]
     Indication: PRODUCT USED FOR UNKNOWN INDICATION
  8. ZOLOFT [Concomitant]
     Indication: PRODUCT USED FOR UNKNOWN INDICATION

REACTIONS (1)
  - PRURITUS [None]
